FAERS Safety Report 10751989 (Version 7)
Quarter: 2016Q3

REPORT INFORMATION
  Report Type: Spontaneous
  Country: CN (occurrence: CN)
  Receive Date: 20150130
  Receipt Date: 20160705
  Transmission Date: 20161109
  Serious: Yes (Death)
  Sender: FDA-Public Use
  Company Number: CN-009507513-1501CHN011020

PATIENT
  Age: 58 Year
  Sex: Male
  Weight: 51 kg

DRUGS (15)
  1. FUROSEMIDE. [Concomitant]
     Active Substance: FUROSEMIDE
     Indication: DIURETIC THERAPY
     Dosage: 20 MG, QD
     Route: 042
     Dates: start: 20150105, end: 20150107
  2. DEXAMETHASONE. [Concomitant]
     Active Substance: DEXAMETHASONE
     Dosage: TOTAL DAILY DOSE 10 MG
     Route: 042
     Dates: start: 20150106, end: 20150107
  3. OMEPRAZOLE. [Concomitant]
     Active Substance: OMEPRAZOLE
     Indication: PROPHYLAXIS
     Dosage: 60 MG, QD
     Route: 042
     Dates: start: 20150105, end: 20150107
  4. PROTEIN (UNSPECIFIED) [Concomitant]
     Indication: TARGETED CANCER THERAPY
     Dosage: 6ML/CC, QD
     Route: 042
     Dates: start: 20150105, end: 20150107
  5. PACLITAXEL. [Concomitant]
     Active Substance: PACLITAXEL
     Indication: CHEMOTHERAPY
     Dosage: 255 MG, DAY 1; TREATMENT REGIMEN: TP CHEMOTHERAPY
     Route: 041
     Dates: start: 20150105, end: 20150105
  6. AMIFOSTINE. [Concomitant]
     Active Substance: AMIFOSTINE
     Indication: CHEMOTHERAPY
     Dosage: 0.5 G, QD
     Route: 042
     Dates: start: 20150105, end: 20150107
  7. ELECTROLYTES (UNSPECIFIED) (+) INVERT SUGAR [Concomitant]
     Indication: FLUID REPLACEMENT
     Dosage: STRENGTH: 1000 ML; 1000ML/CC, QD
     Route: 041
     Dates: start: 20150105, end: 20150107
  8. ALBUMIN HUMAN [Concomitant]
     Active Substance: ALBUMIN HUMAN
     Indication: BLOOD OSMOLARITY
     Dosage: 10 G, QD
     Route: 042
     Dates: start: 20150105, end: 20150107
  9. EMEND [Suspect]
     Active Substance: APREPITANT
     Dosage: DAY 2: 80 MG, ONCE
     Route: 048
     Dates: start: 20150106, end: 20150106
  10. CISPLATIN. [Concomitant]
     Active Substance: CISPLATIN
     Indication: CHEMOTHERAPY
     Dosage: 38 MG, DAY1 - DAY 3
     Route: 042
     Dates: start: 20150105, end: 20150107
  11. EMEND [Suspect]
     Active Substance: APREPITANT
     Indication: PROPHYLAXIS OF NAUSEA AND VOMITING
     Dosage: DAY 1: 125 MG, ONCE
     Route: 048
     Dates: start: 20150105, end: 20150105
  12. TROPISETRON [Concomitant]
     Active Substance: TROPISETRON
     Indication: PROPHYLAXIS
     Dosage: 5 MG, BID
     Route: 042
     Dates: start: 20150105, end: 20150107
  13. PALONOSETRON HYDROCHLORIDE. [Concomitant]
     Active Substance: PALONOSETRON HYDROCHLORIDE
     Indication: PROPHYLAXIS OF NAUSEA AND VOMITING
     Dosage: 0.5 MG, QOD
     Route: 042
     Dates: start: 20150105, end: 20150107
  14. EMEND [Suspect]
     Active Substance: APREPITANT
     Dosage: DAY 3: 80 MG, ONCE
     Route: 048
     Dates: start: 20150107, end: 20150107
  15. DEXAMETHASONE. [Concomitant]
     Active Substance: DEXAMETHASONE
     Indication: PROPHYLAXIS OF NAUSEA AND VOMITING
     Dosage: TOTAL DAILY DOSE 20 MG
     Route: 042
     Dates: start: 20150105, end: 20150105

REACTIONS (1)
  - Haemoptysis [Fatal]

NARRATIVE: CASE EVENT DATE: 20150120
